FAERS Safety Report 9400064 (Version 2)
Quarter: 2013Q3

REPORT INFORMATION
  Report Type: Spontaneous
  Country: JP (occurrence: JP)
  Receive Date: 20130715
  Receipt Date: 20130904
  Transmission Date: 20140515
  Serious: Yes (Other)
  Sender: FDA-Public Use
  Company Number: JP-BAYER-2013-084980

PATIENT
  Age: 43 Year
  Sex: Female
  Weight: 51 kg

DRUGS (4)
  1. YAZ [Suspect]
     Indication: DYSMENORRHOEA
     Dosage: 1 DF, QD
     Route: 048
     Dates: start: 20130218, end: 20130711
  2. MAGNESIUM OXIDE [Suspect]
     Indication: CONSTIPATION
     Dosage: DAILY DOSE 1980 MG
     Route: 048
     Dates: start: 20130218, end: 20130808
  3. BIOFERMIN [Suspect]
     Indication: ENTEROCOLITIS
     Dosage: DAILY DOSE 36 MG
     Route: 048
     Dates: start: 20130502, end: 20130530
  4. VOLTAREN [Suspect]
     Indication: BACK PAIN
     Dosage: DAILY DOSE 75 MG
     Route: 048
     Dates: start: 20130711, end: 20130725

REACTIONS (1)
  - Retinal vein occlusion [Recovered/Resolved]
